FAERS Safety Report 9358901 (Version 1)
Quarter: 2013Q2

REPORT INFORMATION
  Report Type: Spontaneous
  Country: FR (occurrence: FR)
  Receive Date: 20130620
  Receipt Date: 20130620
  Transmission Date: 20140414
  Serious: Yes (Other)
  Sender: FDA-Public Use
  Company Number: FR-TEVA-413747ISR

PATIENT
  Age: 87 Year
  Sex: Male

DRUGS (1)
  1. FUROSEMIDE TEVA 40 MG [Suspect]
     Indication: PULMONARY OEDEMA
     Dosage: 60 MILLIGRAM DAILY; 40 MG IN THE MORNING, 20 MG AT LUNCH DAILY
     Route: 048

REACTIONS (4)
  - Somnolence [Unknown]
  - Road traffic accident [Unknown]
  - Altered state of consciousness [Unknown]
  - Fatigue [Unknown]
